FAERS Safety Report 7033441-7 (Version None)
Quarter: 2010Q4

REPORT INFORMATION
  Report Type: 
  Country: None (occurrence: None)
  Receive Date: 20101005
  Receipt Date: 20100927
  Transmission Date: 20110411
  Serious: Yes (Hospitalization)
  Sender: FDA-Public Use
  Company Number: 1000016522

PATIENT
  Age: 2 Year
  Sex: Female
  Weight: 13 kg

DRUGS (1)
  1. LEVOTHYROID (LEVOTHYROXINE SODIUM) (150 MICROGRAM, TABLETS) [Suspect]
     Dosage: 6 MG (6 MG, ONCE), ORAL
     Route: 048

REACTIONS (8)
  - ACCIDENTAL EXPOSURE [None]
  - ACCIDENTAL OVERDOSE [None]
  - DIARRHOEA [None]
  - HYPERTENSION [None]
  - IRRITABILITY [None]
  - PYREXIA [None]
  - THYROTOXIC CRISIS [None]
  - VOMITING [None]
